FAERS Safety Report 8483980-7 (Version None)
Quarter: 2012Q3

REPORT INFORMATION
  Report Type: 
  Country: None (occurrence: None)
  Receive Date: 20120703
  Receipt Date: 20120628
  Transmission Date: 20120928
  Serious: Yes (Other)
  Sender: FDA-Public Use
  Company Number: US-PFIZER INC-2012156394

PATIENT
  Sex: Female

DRUGS (2)
  1. ZOSYN [Suspect]
     Indication: SUBCUTANEOUS ABSCESS
     Dosage: UNK
  2. VANCOMYCIN HYCHLORIDE [Interacting]
     Indication: SUBCUTANEOUS ABSCESS
     Dosage: UNK

REACTIONS (3)
  - RENAL IMPAIRMENT [None]
  - NEPHROPATHY TOXIC [None]
  - DRUG INTERACTION [None]
